FAERS Safety Report 5402928-2 (Version None)
Quarter: 2007Q3

REPORT INFORMATION
  Report Type: 
  Country: None (occurrence: None)
  Receive Date: 20070801
  Receipt Date: 20070723
  Transmission Date: 20080115
  Serious: No
  Sender: FDA-Public Use
  Company Number: TR-BAXTER-2007BH006514

PATIENT
  Age: 3 Day
  Sex: Male

DRUGS (1)
  1. IMMUNE GLOBULIN INTRAVENOUS (HUMAN) [Suspect]
     Indication: BLOOD INCOMPATIBILITY HAEMOLYTIC ANAEMIA OF NEWBORN
     Route: 065

REACTIONS (2)
  - BLOOD VISCOSITY INCREASED [None]
  - HYPONATRAEMIA [None]
